FAERS Safety Report 5383327-9 (Version None)
Quarter: 2007Q3

REPORT INFORMATION
  Report Type: 
  Country: None (occurrence: None)
  Receive Date: 20070710
  Receipt Date: 20070630
  Transmission Date: 20080115
  Serious: Yes (Other)
  Sender: FDA-Public Use
  Company Number: US-PFIZER INC-2007054193

PATIENT
  Sex: Male
  Weight: 81.6 kg

DRUGS (8)
  1. LYRICA [Suspect]
     Indication: DIABETIC NEUROPATHY
     Route: 048
  2. TOPROL-XL [Concomitant]
  3. METFORMIN HCL [Concomitant]
  4. ACTOS [Concomitant]
  5. VYTORIN [Concomitant]
  6. AVAPRO [Concomitant]
  7. PLAVIX [Concomitant]
  8. IMDUR [Concomitant]

REACTIONS (3)
  - BLISTER [None]
  - DIABETIC NEUROPATHY [None]
  - RASH [None]
